FAERS Safety Report 13321269 (Version 2)
Quarter: 2017Q1

REPORT INFORMATION
  Report Type: Spontaneous
  Country: US (occurrence: US)
  Receive Date: 20170310
  Receipt Date: 20170329
  Transmission Date: 20170428
  Serious: Yes (Other)
  Sender: FDA-Public Use
  Company Number: US-SA-2017SA035951

PATIENT
  Age: 60 Year
  Sex: Male

DRUGS (3)
  1. SEVELAMER SALT NOT SPECIFIED [Suspect]
     Active Substance: SEVELAMER
     Route: 065
  2. PARICALCITOL. [Suspect]
     Active Substance: PARICALCITOL
     Route: 065
  3. CINACALCET ZENTIVA [Suspect]
     Active Substance: CINACALCET
     Route: 065

REACTIONS (2)
  - Blood parathyroid hormone increased [Unknown]
  - Drug ineffective [Unknown]
